FAERS Safety Report 23550055 (Version 1)
Quarter: 2024Q1

REPORT INFORMATION
  Report Type: Spontaneous
  Country: US (occurrence: None)
  Receive Date: 20240221
  Receipt Date: 20240221
  Transmission Date: 20240409
  Serious: Yes (Hospitalization)
  Sender: FDA-Public Use
  Company Number: None

PATIENT
  Age: 60 Year
  Sex: Male

DRUGS (1)
  1. CRESEMBA [Suspect]
     Active Substance: ISAVUCONAZONIUM SULFATE
     Dosage: FREQ: RX1: TAKE TWO CAPSULES BY MOUTH EVERY 8 HOURS FOR 2 DAYS, THEN TAKE 2 CAPSULES BY MOUTH ONCE ?
     Route: 048
     Dates: start: 20240130

REACTIONS (2)
  - Respiratory syncytial virus infection [None]
  - Pneumonia [None]

NARRATIVE: CASE EVENT DATE: 20240216
